FAERS Safety Report 5747978-1 (Version None)
Quarter: 2008Q2

REPORT INFORMATION
  Report Type: 
  Country: None (occurrence: None)
  Receive Date: 20080523
  Receipt Date: 20080515
  Transmission Date: 20081010
  Serious: Yes (Other)
  Sender: FDA-Public Use
  Company Number: AU-JNJFOC-20071107968

PATIENT
  Age: 43 Year
  Sex: Male

DRUGS (1)
  1. NIZORAL [Suspect]
     Indication: FUNGAL SKIN INFECTION
     Route: 061

REACTIONS (4)
  - APPLICATION SITE SCAR [None]
  - BLISTER [None]
  - BURNING SENSATION [None]
  - SKIN EXFOLIATION [None]
